FAERS Safety Report 16856774 (Version 1)
Quarter: 2019Q3

REPORT INFORMATION
  Report Type: Report from Study
  Country: US (occurrence: US)
  Receive Date: 20190926
  Receipt Date: 20190926
  Transmission Date: 20191005
  Serious: Yes (Hospitalization)
  Sender: FDA-Public Use
  Company Number: US-IPSEN BIOPHARMACEUTICALS, INC.-2019-17479

PATIENT
  Age: 70 Year
  Sex: Female
  Weight: 65.7 kg

DRUGS (5)
  1. ONIVYDE [Suspect]
     Active Substance: IRINOTECAN HYDROCHLORIDE
     Indication: PANCREATIC CARCINOMA
     Dosage: 05W 528 ML, 352 ML/HR
     Route: 042
  2. LEUCOVORIN. [Suspect]
     Active Substance: LEUCOVORIN
     Indication: PANCREATIC CARCINOMA
     Dosage: 700 MG IN O5N 285 ML-700 MG, 570 ML/HR
     Route: 042
  3. RUCAPARIB [Suspect]
     Active Substance: RUCAPARIB
     Indication: PANCREATIC CARCINOMA
     Dosage: DAYS 4-13 AND 18-27
     Route: 048
     Dates: start: 20190918
  4. FLUOROURACIL. [Suspect]
     Active Substance: FLUOROURACIL
     Indication: PANCREATIC CARCINOMA
     Dosage: 4000 MG IN NACL 990, 2 ML/HR
     Route: 042
  5. FOLFIRI [Suspect]
     Active Substance: FLUOROURACIL\IRINOTECAN\LEUCOVORIN
     Indication: PANCREATIC CARCINOMA
     Route: 042
     Dates: start: 20190909

REACTIONS (2)
  - Diarrhoea [Unknown]
  - Fatigue [Unknown]

NARRATIVE: CASE EVENT DATE: 20190918
